FAERS Safety Report 5190608-0 (Version None)
Quarter: 2006Q4

REPORT INFORMATION
  Report Type: 
  Country: None (occurrence: None)
  Receive Date: 20061222
  Receipt Date: 20060920
  Transmission Date: 20070319
  Serious: No
  Sender: FDA-Public Use
  Company Number: US-BRISTOL-MYERS SQUIBB COMPANY-13515564

PATIENT
  Age: 78 Year
  Sex: Female
  Weight: 72 kg

DRUGS (14)
  1. ORENCIA [Suspect]
     Indication: RHEUMATOID ARTHRITIS
     Route: 042
  2. METHOTREXATE [Concomitant]
  3. TOPROL-XL [Concomitant]
  4. OMEPRAZOLE [Concomitant]
  5. LASIX [Concomitant]
  6. LIPITOR [Concomitant]
  7. CELEBREX [Concomitant]
  8. LEXAPRO [Concomitant]
  9. XALATAN [Concomitant]
  10. PERCOCET [Concomitant]
  11. CALCIUM [Concomitant]
  12. VITAMIN D [Concomitant]
  13. MULTI-VITAMIN [Concomitant]
  14. TYLENOL [Concomitant]

REACTIONS (2)
  - FATIGUE [None]
  - MUSCLE SPASMS [None]
